FAERS Safety Report 9686124 (Version 1)
Quarter: 2013Q4

REPORT INFORMATION
  Report Type: Spontaneous
  Country: GB (occurrence: None)
  Receive Date: 20131108
  Receipt Date: 20131108
  Transmission Date: 20140711
  Serious: Yes (Other)
  Sender: FDA-Public Use
  Company Number: 2013232480

PATIENT
  Age: 59 Year
  Sex: Female
  Weight: 42.2 kg

DRUGS (3)
  1. FRAGMIN [Suspect]
     Indication: TIBIA FRACTURE
     Route: 051
     Dates: start: 20130330, end: 20130516
  2. NAPROXEN (NAPROXEN) [Concomitant]
  3. CODEINE PHOSPHATE (CODEINE PHOSPHATE) [Concomitant]

REACTIONS (4)
  - Alopecia [None]
  - Hair colour changes [None]
  - Hair texture abnormal [None]
  - Hair growth abnormal [None]
